FAERS Safety Report 18055550 (Version 1)
Quarter: 2020Q3

REPORT INFORMATION
  Report Type: Spontaneous
  Country: US (occurrence: US)
  Receive Date: 20200722
  Receipt Date: 20200722
  Transmission Date: 20201103
  Serious: No
  Sender: FDA-Public Use
  Company Number: US-TARO-2019TAR00754

PATIENT
  Age: 90 Year
  Sex: Female

DRUGS (3)
  1. UNSPECIFIED OPIOID [Concomitant]
     Active Substance: UNSPECIFIED INGREDIENT
  2. CLOTRIMAZOLE/BETAMETHASONE DIPROPIONATE CREAM USP 1%/0.05% [Suspect]
     Active Substance: BETAMETHASONE DIPROPIONATE\CLOTRIMAZOLE
     Indication: VULVOVAGINAL DRYNESS
     Dosage: 1 APPLICATION, 2X/DAY
     Route: 061
     Dates: start: 2015
  3. CLOTRIMAZOLE/BETAMETHASONE DIPROPIONATE CREAM USP 1%/0.05% [Suspect]
     Active Substance: BETAMETHASONE DIPROPIONATE\CLOTRIMAZOLE
     Indication: VAGINAL INFECTION
     Dosage: 1 APPLICATION, 2X/DAY
     Route: 067
     Dates: start: 2015

REACTIONS (5)
  - Incorrect product administration duration [Not Recovered/Not Resolved]
  - Micturition urgency [Recovering/Resolving]
  - Incorrect route of product administration [Not Recovered/Not Resolved]
  - Cystitis [Recovered/Resolved]
  - Dysuria [Recovering/Resolving]

NARRATIVE: CASE EVENT DATE: 2015
